FAERS Safety Report 8170213-4 (Version None)
Quarter: 2012Q1

REPORT INFORMATION
  Report Type: 
  Country: None (occurrence: None)
  Receive Date: 20120228
  Receipt Date: 20120215
  Transmission Date: 20120608
  Serious: Yes (Other)
  Sender: FDA-Public Use
  Company Number: JP-JNJFOC-20120212323

PATIENT
  Age: 64 Year
  Sex: Female
  Weight: 49 kg

DRUGS (13)
  1. METHOTREXATE [Concomitant]
     Route: 048
  2. ENBREL [Concomitant]
  3. REMICADE [Suspect]
     Indication: RHEUMATOID ARTHRITIS
     Route: 042
     Dates: start: 20090911
  4. REMICADE [Suspect]
     Route: 042
     Dates: start: 20100106
  5. REMICADE [Suspect]
     Route: 042
     Dates: start: 20100204
  6. LOXOPROFEN [Concomitant]
     Route: 048
  7. PREDNISOLONE [Concomitant]
     Dates: start: 20081107
  8. ACTONEL [Concomitant]
     Route: 048
  9. REBAMIPIDE [Concomitant]
     Route: 048
  10. REMICADE [Suspect]
     Route: 042
     Dates: start: 20091203
  11. REMICADE [Suspect]
     Route: 042
     Dates: start: 20091023
  12. TALION [Concomitant]
     Indication: PROPHYLAXIS
     Route: 048
     Dates: start: 20100204, end: 20100204
  13. LANSOPRAZOLE [Concomitant]
     Route: 048

REACTIONS (3)
  - INFUSION RELATED REACTION [None]
  - OXYGEN SATURATION DECREASED [None]
  - BLOOD PRESSURE DECREASED [None]
